FAERS Safety Report 9967519 (Version 1)
Quarter: 2014Q1

REPORT INFORMATION
  Report Type: Report from Study
  Country: US (occurrence: US)
  Receive Date: 20140305
  Receipt Date: 20140305
  Transmission Date: 20141002
  Serious: No
  Sender: FDA-Public Use
  Company Number: US-ABBVIE-13P-163-1139122-00

PATIENT
  Age: 37 Year
  Sex: Female

DRUGS (11)
  1. HUMIRA [Suspect]
     Indication: CROHN^S DISEASE
     Dates: start: 20130524
  2. OMEPRAZOLE [Concomitant]
     Indication: GASTROOESOPHAGEAL REFLUX DISEASE
  3. OXYCODONE/APAP [Concomitant]
     Indication: PAIN
     Dosage: 10/325 MG
  4. LOMOTIL [Concomitant]
     Indication: DIARRHOEA
  5. TRAZODONE [Concomitant]
     Indication: INSOMNIA
     Dosage: AT BEDTIME
  6. OXYCODONE [Concomitant]
     Indication: PAIN
  7. TOPROL [Concomitant]
     Indication: HYPERTENSION
     Dosage: AT BEDTIME
  8. PROMETHAZINE [Concomitant]
     Indication: NAUSEA
  9. XANAX [Concomitant]
     Indication: ANXIETY
     Dosage: TAKES 2-3 TIMES A DAY
  10. BC HEADACHE POWDER [Concomitant]
     Indication: HEADACHE
     Dosage: TWICE DAILY AS NEEDED
  11. ALEVE [Concomitant]
     Indication: PAIN
     Dosage: TWICE DAILY AS NEEDED

REACTIONS (7)
  - Malaise [Recovering/Resolving]
  - Clostridium test positive [Unknown]
  - Weight decreased [Recovering/Resolving]
  - Feeling abnormal [Recovering/Resolving]
  - Pyrexia [Recovering/Resolving]
  - Diarrhoea [Recovering/Resolving]
  - Blood pressure increased [Recovering/Resolving]
